FAERS Safety Report 7591747-7 (Version None)
Quarter: 2011Q3

REPORT INFORMATION
  Report Type: 
  Country: None (occurrence: None)
  Receive Date: 20110706
  Receipt Date: 20110630
  Transmission Date: 20111222
  Serious: Yes (Hospitalization)
  Sender: FDA-Public Use
  Company Number: ES-US-EMD SERONO, INC.-E2B_7068074

PATIENT
  Age: 35 Year
  Sex: Female

DRUGS (4)
  1. LEUPROLIDE ACETATE [Interacting]
     Indication: IN VITRO FERTILISATION
     Dosage: PROCRIN 1 MG/0,2 ML SOLUCION INYECTABLE , 1 VIAL MULTIDOSIS 2,8 ML+14
     Route: 058
     Dates: start: 20110308
  2. PUREGON [Interacting]
     Indication: IN VITRO FERTILISATION
     Dosage: PUREGON 200 UI/0,5 ML SOLUCION INYECTABLE 10
     Route: 058
     Dates: start: 20110331, end: 20110406
  3. GONAL-F [Suspect]
     Indication: IN VITRO FERTILISATION
     Dosage: GONAL-F 75UI(5,5MCG)/VIAL 5 VI + 5 JER PRE SOL INY
     Route: 058
     Dates: start: 20110405, end: 20110410
  4. CHORIONIC GONADOTROPIN [Interacting]
     Indication: IN VITRO FERTILISATION
     Dosage: OVITRELLE 250MCG 2 INYECTABLES
     Route: 058
     Dates: start: 20110410, end: 20110410

REACTIONS (3)
  - PLEURAL EFFUSION [None]
  - ASCITES [None]
  - OVARIAN HYPERSTIMULATION SYNDROME [None]
